FAERS Safety Report 5363701-7 (Version None)
Quarter: 2007Q2

REPORT INFORMATION
  Report Type: 
  Country: None (occurrence: None)
  Receive Date: 20070620
  Receipt Date: 20070611
  Transmission Date: 20071010
  Serious: Yes (Hospitalization)
  Sender: FDA-Public Use
  Company Number: US-ROCHE-501670

PATIENT
  Age: 75 Year
  Sex: Female

DRUGS (5)
  1. BONIVA [Suspect]
     Indication: DRUG USE FOR UNKNOWN INDICATION
     Route: 065
     Dates: start: 20070414, end: 20070514
  2. DIOVAN [Concomitant]
  3. HYDROCHLOROTHIAZIDE [Concomitant]
  4. PRILOSEC [Concomitant]
     Dosage: OTC
  5. ASPIRIN [Concomitant]

REACTIONS (4)
  - BLOOD SODIUM DECREASED [None]
  - CONFUSIONAL STATE [None]
  - DEPRESSION [None]
  - INSOMNIA [None]
